FAERS Safety Report 9873975 (Version 2)
Quarter: 2014Q1

REPORT INFORMATION
  Report Type: Other
  Country: US (occurrence: US)
  Receive Date: 20140206
  Receipt Date: 20140206
  Transmission Date: 20141002
  Serious: No
  Sender: FDA-Public Use
  Company Number: US-ACORDA-ACO_34977_2013

PATIENT
  Sex: Male
  Weight: 90.7 kg

DRUGS (18)
  1. AMPYRA [Suspect]
     Indication: GAIT DISTURBANCE
     Dosage: 10 MG, BID
     Dates: start: 2011, end: 201302
  2. AMPYRA [Suspect]
     Dosage: 10 MG, BID
     Dates: start: 20130321
  3. INTERFERON BETA-1A [Concomitant]
     Indication: PRODUCT USED FOR UNKNOWN INDICATION
     Dosage: 40 ?G, UNK
  4. ANTIHYPERTENSIVES [Concomitant]
     Indication: BLOOD PRESSURE
     Dosage: UNK
  5. ALL OTHER THERAPEUTIC PRODUCTS [Concomitant]
     Indication: PRODUCT USED FOR UNKNOWN INDICATION
     Dosage: UNK
  6. TRICOR [Concomitant]
     Indication: PRODUCT USED FOR UNKNOWN INDICATION
     Dosage: UNK
  7. ACYCLOVIR [Concomitant]
     Indication: ORAL HERPES
     Dosage: 400 MG, TID
     Route: 048
  8. CITALOPRAM [Concomitant]
     Indication: PRODUCT USED FOR UNKNOWN INDICATION
     Dosage: 20 MG, QD
  9. DYAZIDE [Concomitant]
     Indication: PRODUCT USED FOR UNKNOWN INDICATION
     Dosage: 1 CAPSULE, QD
     Route: 065
  10. GABAPENTIN [Concomitant]
     Indication: BURNING FEET SYNDROME
     Dosage: 600 MG, TID
     Route: 048
  11. METAXALONE [Concomitant]
     Indication: BACK PAIN
     Dosage: 800 MG, 3-4 TIMES A DAY
     Route: 048
  12. NYSTATIN [Concomitant]
     Indication: RASH
     Dosage: 100000 IU, BID
  13. OXYCODONE AND ACETAMINOPHEN [Concomitant]
     Indication: PRODUCT USED FOR UNKNOWN INDICATION
     Dosage: 10 MG, BID
     Route: 065
  14. REBIF [Concomitant]
     Indication: PRODUCT USED FOR UNKNOWN INDICATION
     Dosage: 44 ?G, UNK
     Route: 065
     Dates: start: 20091013
  15. VITAMIN B12 [Concomitant]
     Indication: PRODUCT USED FOR UNKNOWN INDICATION
     Dosage: UNK, QD
     Route: 060
  16. TRAZODONE [Concomitant]
     Indication: PRODUCT USED FOR UNKNOWN INDICATION
     Dosage: 100 MG, 1.5 HS
     Route: 048
  17. VITAMIN D [Concomitant]
     Indication: VITAMIN D DEFICIENCY
     Dosage: 2000 IU, QD
  18. XALATAN [Concomitant]
     Indication: PRODUCT USED FOR UNKNOWN INDICATION
     Dosage: UNK,UNK
     Route: 065

REACTIONS (6)
  - Memory impairment [Not Recovered/Not Resolved]
  - Gait disturbance [Recovered/Resolved]
  - Burning sensation [Recovered/Resolved]
  - Pain in extremity [Recovered/Resolved]
  - Therapeutic response unexpected [Unknown]
  - Visual acuity reduced [Unknown]
